FAERS Safety Report 21335783 (Version 3)
Quarter: 2022Q4

REPORT INFORMATION
  Report Type: Report from Study
  Country: US (occurrence: None)
  Receive Date: 20220915
  Receipt Date: 20221104
  Transmission Date: 20230112
  Serious: Yes (Other)
  Sender: FDA-Public Use
  Company Number: US-Merck Healthcare KGaA-9349916

PATIENT
  Sex: Female
  Weight: 94 kg

DRUGS (2)
  1. REBIF [Suspect]
     Active Substance: INTERFERON BETA-1A
     Indication: Relapsing-remitting multiple sclerosis
     Route: 058
     Dates: start: 20170210
  2. REBIF [Suspect]
     Active Substance: INTERFERON BETA-1A
     Dosage: 0.5 ML
     Route: 058

REACTIONS (4)
  - Giant cell arteritis [Unknown]
  - Cerebral cyst [Unknown]
  - Migraine [Recovered/Resolved]
  - Inappropriate schedule of product administration [Unknown]
